FAERS Safety Report 5446194-0 (Version None)
Quarter: 2007Q3

REPORT INFORMATION
  Report Type: 
  Country: None (occurrence: None)
  Receive Date: 20070907
  Receipt Date: 20070830
  Transmission Date: 20080115
  Serious: Yes (Hospitalization, Other)
  Sender: FDA-Public Use
  Company Number: PHHO2007BR14338

PATIENT
  Sex: Female
  Weight: 69 kg

DRUGS (6)
  1. DIOVAN [Suspect]
     Indication: HYPERTENSION
     Dosage: QD
     Route: 048
  2. LIPITOR [Concomitant]
  3. SUSTRATE [Concomitant]
  4. CARVEDILOL [Concomitant]
  5. AAS [Concomitant]
  6. DIOVAN AMLO [Suspect]
     Indication: HYPERTENSION
     Dosage: 160/5
     Route: 048

REACTIONS (5)
  - ANGIOPLASTY [None]
  - CARDIAC ARREST [None]
  - COUGH [None]
  - ERUCTATION [None]
  - PNEUMONIA [None]
